FAERS Safety Report 9482558 (Version 1)
Quarter: 2013Q3

REPORT INFORMATION
  Report Type: Spontaneous
  Country: IT (occurrence: IT)
  Receive Date: 20130828
  Receipt Date: 20130828
  Transmission Date: 20140515
  Serious: Yes (Hospitalization)
  Sender: FDA-Public Use
  Company Number: IT-ASTRAZENECA-2013SE64325

PATIENT
  Age: 28795 Day
  Sex: Female

DRUGS (2)
  1. BLOPRESS [Suspect]
     Route: 048
     Dates: start: 20130811, end: 20130811
  2. LUVION [Suspect]
     Route: 048
     Dates: start: 20130811, end: 20130811

REACTIONS (3)
  - Atrial fibrillation [Recovered/Resolved with Sequelae]
  - Sopor [Recovered/Resolved with Sequelae]
  - Medication error [Recovered/Resolved with Sequelae]
